FAERS Safety Report 17515981 (Version 2)
Quarter: 2020Q1

REPORT INFORMATION
  Report Type: Spontaneous
  Country: DE (occurrence: DE)
  Receive Date: 20200309
  Receipt Date: 20200320
  Transmission Date: 20200409
  Serious: Yes (Other)
  Sender: FDA-Public Use
  Company Number: DE-PFIZER INC-2020097428

PATIENT

DRUGS (1)
  1. CYTOTEC [Suspect]
     Active Substance: MISOPROSTOL
     Indication: LABOUR INDUCTION
     Dosage: 75 UG (9 A.M .: 25 UG CYTOTEC, 1 P.M .: 50 UG CYTOTEC)
     Route: 064
     Dates: start: 20121006

REACTIONS (6)
  - Birth trauma [Unknown]
  - Foetal exposure during delivery [Unknown]
  - Mental disorder [Not Recovered/Not Resolved]
  - Emotional disorder [Not Recovered/Not Resolved]
  - Subglottic laryngitis [Unknown]
  - Oxygen saturation abnormal [Unknown]
